FAERS Safety Report 7531588-X (Version None)
Quarter: 2011Q2

REPORT INFORMATION
  Report Type: 
  Country: None (occurrence: None)
  Receive Date: 20110601
  Receipt Date: 20110520
  Transmission Date: 20111010
  Serious: Yes (Hospitalization, Other)
  Sender: FDA-Public Use
  Company Number: ABR_00134_2011

PATIENT
  Age: 5 Year
  Sex: Male

DRUGS (13)
  1. PIPERACILLIN AND TAZOBACTAM [Suspect]
     Indication: PNEUMONIA MYCOPLASMAL
     Dosage: DF
  2. CEFOTAXIME SODIUM [Suspect]
     Indication: PNEUMONIA MYCOPLASMAL
     Dosage: DF
  3. LAMOTRIGINE [Suspect]
     Indication: EPILEPSY
     Dosage: DF
  4. DIAZEPAM [Suspect]
     Indication: STATUS EPILEPTICUS
     Dosage: DF
  5. VALPROATE SODIUM [Suspect]
     Indication: PRODUCT USED FOR UNKNOWN INDICATION
  6. THIOPENTONE SODIUM (THIOPENTONE) [Suspect]
     Indication: STATUS EPILEPTICUS
     Dosage: DF
  7. CLONAZEPAM [Suspect]
     Indication: STATUS EPILEPTICUS
     Dosage: DF
  8. ANTIBIOTICS [Concomitant]
  9. ERYTHROMYCIN ETHYLSUCCINATE (ERYTHROMYCIN) [Suspect]
     Indication: PNEUMONIA MYCOPLASMAL
  10. PHENYTOIN [Suspect]
     Indication: STATUS EPILEPTICUS
     Dosage: DF
  11. CLOBAZAM (CLOBAZAM) [Suspect]
     Indication: PRODUCT USED FOR UNKNOWN INDICATION
     Dosage: DF
  12. PARALDEHYDE (PARALDEHYDE) [Suspect]
     Indication: STATUS EPILEPTICUS
     Dosage: DF
  13. GENTAMICIN SULFATE [Suspect]
     Indication: PNEUMONITIS
     Dosage: DF

REACTIONS (10)
  - COGNITIVE DISORDER [None]
  - CEREBRAL ATROPHY [None]
  - MOVEMENT DISORDER [None]
  - HYPOTONIA [None]
  - STATUS EPILEPTICUS [None]
  - APHASIA [None]
  - HYPOXIC-ISCHAEMIC ENCEPHALOPATHY [None]
  - FEBRILE CONVULSION [None]
  - DEVELOPMENTAL DELAY [None]
  - BRAIN OEDEMA [None]
